FAERS Safety Report 14759760 (Version 1)
Quarter: 2018Q2

REPORT INFORMATION
  Report Type: Spontaneous
  Country: TR (occurrence: TR)
  Receive Date: 20180413
  Receipt Date: 20180413
  Transmission Date: 20180711
  Serious: Yes (Death, Hospitalization, Other)
  Sender: FDA-Public Use
  Company Number: TR-BAYER-2018-068386

PATIENT
  Age: 49 Year
  Sex: Male

DRUGS (4)
  1. HEPARIN [Interacting]
     Active Substance: HEPARIN SODIUM
     Indication: ANTIPLATELET THERAPY
     Dosage: 10000 U, UNK
  2. ACETYLSALICYLIC ACID({=100 MG) [Suspect]
     Active Substance: ASPIRIN
     Indication: ANTIPLATELET THERAPY
     Dosage: 300 MG, UNK
  3. ABCIXIMAB [Interacting]
     Active Substance: ABCIXIMAB
     Indication: ANTIPLATELET THERAPY
     Dosage: UNK
  4. TICAGRELOR. [Interacting]
     Active Substance: TICAGRELOR
     Indication: ANTIPLATELET THERAPY
     Dosage: 180 MG, UNK

REACTIONS (6)
  - Bronchial haemorrhage [None]
  - Labelled drug-drug interaction medication error [None]
  - Pulmonary alveolar haemorrhage [None]
  - Drug administration error [None]
  - Respiratory distress [Fatal]
  - Haemoptysis [None]
